FAERS Safety Report 25892876 (Version 1)
Quarter: 2025Q4

REPORT INFORMATION
  Report Type: Report from Study
  Country: US (occurrence: US)
  Receive Date: 20251007
  Receipt Date: 20251007
  Transmission Date: 20260117
  Serious: Yes (Other)
  Sender: ABBVIE
  Company Number: US-ABBVIE-6364187

PATIENT
  Age: 61 Year
  Sex: Male
  Weight: 102.06 kg

DRUGS (6)
  1. VYALEV [Suspect]
     Active Substance: FOSCARBIDOPA\FOSLEVODOPA
     Indication: Parkinson^s disease
     Dosage: LAST ADMIN DATE: 2025
     Route: 058
     Dates: start: 20250225
  2. VYALEV [Suspect]
     Active Substance: FOSCARBIDOPA\FOSLEVODOPA
     Dosage: DOSE: 1.10 ML
     Route: 058
     Dates: start: 20250603
  3. PREGABALIN [Concomitant]
     Active Substance: PREGABALIN
     Indication: Product used for unknown indication
     Dosage: 50 MG, DOSAGE: 30 DAYS, 5. DAYS: 179
     Route: 048
  4. MYRBETRIQ [Concomitant]
     Active Substance: MIRABEGRON
     Indication: Product used for unknown indication
     Dosage: DOSAGE: 1QD 90 DAYS, 3.?EXTENDED RELEASE, 24 HOURS, DAYS: 353
     Route: 048
  5. LAMOTRIGINE [Concomitant]
     Active Substance: LAMOTRIGINE
     Indication: Product used for unknown indication
     Dosage: 100 MG.?DOSAGE: BID PO 90 DAYS, DAYS: 317
  6. NUPLAZID [Concomitant]
     Active Substance: PIMAVANSERIN TARTRATE
     Indication: Product used for unknown indication
     Dosage: 34 MG,?DOSAGE: 1QD 30 DAYS, 5
     Route: 048

REACTIONS (1)
  - Injection site infection [Recovering/Resolving]

NARRATIVE: CASE EVENT DATE: 20250705
